FAERS Safety Report 24000844 (Version 1)
Quarter: 2024Q2

REPORT INFORMATION
  Report Type: Spontaneous
  Country: US (occurrence: US)
  Receive Date: 20240621
  Receipt Date: 20240621
  Transmission Date: 20240716
  Serious: No
  Sender: FDA-Public Use
  Company Number: US-PERRIGO-24US005083

PATIENT

DRUGS (1)
  1. MOMETASONE FUROATE [Suspect]
     Active Substance: MOMETASONE FUROATE
     Indication: Ear congestion
     Dosage: UNKNOWN, UNKNOWN
     Route: 045
     Dates: start: 20240519

REACTIONS (1)
  - Drug effective for unapproved indication [Unknown]
